FAERS Safety Report 8239900-3 (Version None)
Quarter: 2012Q1

REPORT INFORMATION
  Report Type: 
  Country: None (occurrence: None)
  Receive Date: 20120328
  Receipt Date: 20120323
  Transmission Date: 20120608
  Serious: Yes (Hospitalization, Other)
  Sender: FDA-Public Use
  Company Number: PHEH2007US016484

PATIENT
  Sex: Female
  Weight: 56.689 kg

DRUGS (99)
  1. WELLBUTRIN [Concomitant]
     Dosage: 200 MG, BID
  2. AMITIZA [Concomitant]
     Dosage: 24 UG, BID
  3. HYTRIN [Concomitant]
     Dosage: 5 MG, UNK
  4. BENICAR [Concomitant]
     Dosage: UNK
  5. VELCADE [Concomitant]
     Dosage: UNK
  6. NEUPOGEN [Concomitant]
     Dosage: 960 MCG / DAILY
     Dates: start: 20071201
  7. ZELNORM                                 /USA/ [Concomitant]
     Dosage: 6.MG
  8. ZOCOR [Concomitant]
     Dosage: 80 MG, QD
     Dates: start: 20030101
  9. ESTRATEST [Concomitant]
     Dosage: 1.25/2.5 QAM
  10. ATIVAN [Concomitant]
     Dosage: 1 MG, PRN Q12H
  11. QVAR 40 [Concomitant]
     Dosage: 40 MCG, 2 INHALATIONS DAILY
  12. CHLORHEXIDINE GLUCONATE [Concomitant]
     Dosage: UNK
  13. CELEBREX [Concomitant]
     Dosage: 200 MG
  14. PREDNISONE TAB [Concomitant]
     Dosage: UNK
  15. ALDACTONE [Concomitant]
  16. ALBUTEROL [Concomitant]
  17. PROPULSID [Concomitant]
     Dosage: 40 MG, BID
  18. COREG [Concomitant]
     Dosage: 6.25 MG, QAM
  19. TRAMADOL HCL [Concomitant]
     Dosage: 100 MG, QAM+QPM
  20. LAXATIVES [Concomitant]
     Dosage: UNK
  21. CHEMOTHERAPEUTICS NOS [Concomitant]
  22. HYDROCHLOROTHIAZIDE [Concomitant]
     Indication: HYPERTENSION
  23. PAROXETINE HCL [Concomitant]
  24. OMEPRAZOLE [Concomitant]
     Dosage: 20 MG / DAILY
  25. REVLIMID [Concomitant]
     Dosage: UNK
  26. DOXILEK [Concomitant]
     Dosage: UNK
  27. BUPROPION HCL [Concomitant]
     Dosage: 200 MG
  28. TIZANIDINE HYDROCHLORIDE [Concomitant]
     Dosage: 4 MG
  29. LORAZEPAM [Concomitant]
     Dosage: 1 MG
  30. PENICILLIN V POTASSIUM [Concomitant]
     Dosage: 500 MG
  31. PROCHLORPERAZINE [Concomitant]
     Dosage: 10 MG
  32. ASPIRIN [Concomitant]
     Dosage: UNK
  33. METOCLOPRAMIDE [Concomitant]
  34. TESSALON [Concomitant]
  35. PAXIL [Concomitant]
     Dosage: 30 MG
     Dates: start: 20061115, end: 20061121
  36. PREVACID [Concomitant]
     Indication: GASTROOESOPHAGEAL REFLUX DISEASE
  37. TERAZOSIN HCL [Concomitant]
  38. METRONIDAZOLE [Concomitant]
  39. TRAZODONE HCL [Concomitant]
  40. WELLBUTRIN SR [Concomitant]
  41. ACTONEL [Concomitant]
  42. FLONASE [Concomitant]
  43. PERCOCET [Concomitant]
     Dosage: UNK
  44. ZANAFLEX [Concomitant]
     Dosage: 4 MG, 1/2 TABLET
  45. CITALOPRAM HYDROBROMIDE [Concomitant]
     Dosage: 60 MG / DAILY
     Route: 048
     Dates: end: 20071204
  46. ARANESP [Concomitant]
     Dosage: UNK
  47. DEXAMETHASONE [Concomitant]
     Dosage: UNK
     Dates: start: 20070416
  48. PAROXETINE HCL [Concomitant]
     Dosage: 40 MG
  49. LITHIUM CARBONATE [Concomitant]
     Dosage: UNK
  50. LANOXIN [Concomitant]
     Dosage: 0.125 MG/ DAILY
  51. ACYCLOVIR [Concomitant]
  52. TYLENOL [Concomitant]
  53. PAXIL [Concomitant]
     Dosage: 60 MG /  DAILY
     Dates: start: 20060927, end: 20061114
  54. LIPITOR [Concomitant]
     Dosage: UNK
     Dates: start: 20030101
  55. ASTELIN [Concomitant]
  56. DOXYCYCLINE HYCLATE [Concomitant]
     Dosage: 100 MG
  57. PERIOGARD [Concomitant]
     Dosage: UNK
  58. IBUPROFEN [Concomitant]
     Dosage: 800 MG
  59. GLYCOLAX [Concomitant]
     Dosage: UNK
  60. ESTROGEN W/MEDROXYPROGESTERON [Concomitant]
  61. FOSAMAX [Suspect]
  62. PAXIL [Concomitant]
     Dosage: 40 MG
     Dates: end: 20060926
  63. NEXIUM [Concomitant]
     Dosage: 40 MG, QAM
  64. MOBIC [Concomitant]
     Dosage: 15 MG, QD
  65. PROMETRIUM [Concomitant]
     Dosage: 100 MG, UNK
  66. LUNESTA [Concomitant]
     Dosage: 2 MG, BEDTIME
  67. TOPRAL [Concomitant]
     Indication: HYPERTENSION
     Dosage: UNK
  68. TOPROL-XL [Concomitant]
  69. LIPITOR [Concomitant]
     Dosage: UNK
  70. CITALOPRAM HYDROBROMIDE [Concomitant]
     Dosage: 20 MG / EVERY 3-4 NIGHTS
     Dates: start: 20071205
  71. DIGITALIS TAB [Concomitant]
     Dosage: UNK
     Dates: start: 20080201
  72. BENICAR HCT [Concomitant]
     Dosage: 12.5 MG
  73. CYMBALTA [Concomitant]
     Dosage: 30 MG
     Dates: end: 20061122
  74. INSULIN GLARGINE [Concomitant]
  75. CIPROFLOXACIN [Concomitant]
  76. ZOMETA [Suspect]
     Indication: MULTIPLE MYELOMA
     Dosage: UNK
     Dates: start: 20070501
  77. AMBIEN [Concomitant]
     Dosage: 6.25 MG
  78. CYMBALTA [Concomitant]
     Dosage: 90 MG / DAILY
     Dates: start: 20061213
  79. HYDROCODONE [Concomitant]
     Dosage: 500 MG
  80. TERAZOSIN HCL [Concomitant]
     Dosage: 5 MG
  81. CEPHALEXIN [Concomitant]
     Dosage: 500 MG
  82. TRIAMTERENE AND HYDROCHLOROTHIAZIDE [Concomitant]
     Dosage: 25 MG
  83. PROZAC [Concomitant]
     Dosage: UNK
  84. CELEXA [Concomitant]
  85. COLACE [Concomitant]
     Dosage: UNK
  86. SKELAXIN [Concomitant]
     Dosage: 800 MG, QID
  87. EFFEXOR [Concomitant]
     Dosage: 225 MG, QHS
  88. PROVIGIL [Concomitant]
     Indication: FATIGUE
  89. TRIAMCINOLONE [Concomitant]
  90. CYTOMEL [Concomitant]
  91. ULTRAM [Concomitant]
     Dosage: 300 MG / DAILY
     Route: 048
  92. MELPHALAN HYDROCHLORIDE [Concomitant]
  93. MELOXICAM [Concomitant]
     Dosage: 15 MG
  94. FLUCONAZOLE [Concomitant]
     Dosage: 200 MG
  95. CYMBALTA [Concomitant]
     Dosage: 60 MG / DAILY
     Dates: start: 20061123, end: 20061213
  96. TRAMADOL HCL [Concomitant]
     Dosage: 50 MG
  97. ZOLOFT [Concomitant]
     Dosage: UNK
  98. LEXAPRO [Concomitant]
     Dosage: UNK
  99. ELAVIL [Concomitant]
     Dosage: UNK

REACTIONS (93)
  - CARDIAC FAILURE CONGESTIVE [None]
  - TOOTH INFECTION [None]
  - PURULENT DISCHARGE [None]
  - FIBROUS HISTIOCYTOMA [None]
  - HYPERKERATOSIS [None]
  - JOINT EFFUSION [None]
  - PALMAR-PLANTAR ERYTHRODYSAESTHESIA SYNDROME [None]
  - NODULE [None]
  - MALNUTRITION [None]
  - OEDEMA PERIPHERAL [None]
  - PERIODONTAL DISEASE [None]
  - NAUSEA [None]
  - PYREXIA [None]
  - RETCHING [None]
  - CONGESTIVE CARDIOMYOPATHY [None]
  - SPINAL OSTEOARTHRITIS [None]
  - PARAESTHESIA ORAL [None]
  - ANGIOPATHY [None]
  - ANXIETY [None]
  - DERMATITIS [None]
  - ORTHODONTIC APPLIANCE USER [None]
  - SKIN FIBROSIS [None]
  - ORAL FIBROMA [None]
  - ACTINOMYCOSIS [None]
  - LYMPHOCYTE COUNT DECREASED [None]
  - BACTERAEMIA [None]
  - BONE DISORDER [None]
  - PAIN IN JAW [None]
  - POSTMENOPAUSAL HAEMORRHAGE [None]
  - RENAL FAILURE [None]
  - ABDOMINAL PAIN UPPER [None]
  - AZOTAEMIA [None]
  - TACHYCARDIA [None]
  - PATHOLOGICAL FRACTURE [None]
  - DEHYDRATION [None]
  - BONE FRAGMENTATION [None]
  - MITRAL VALVE PROLAPSE [None]
  - BONE EROSION [None]
  - ARTHRITIS [None]
  - NECK INJURY [None]
  - CONSTIPATION [None]
  - RASH [None]
  - DENTAL FISTULA [None]
  - ORAL MUCOSA ATROPHY [None]
  - TOOTH DISORDER [None]
  - ORAL CAVITY FISTULA [None]
  - SKIN DISORDER [None]
  - EXCESSIVE GRANULATION TISSUE [None]
  - DEFORMITY [None]
  - DIVERTICULUM [None]
  - ANAEMIA [None]
  - FALL [None]
  - GINGIVAL RECESSION [None]
  - OESOPHAGEAL MUCOSAL HYPERPLASIA [None]
  - WOUND DEHISCENCE [None]
  - BONE LESION [None]
  - EJECTION FRACTION DECREASED [None]
  - BONE LOSS [None]
  - ANHEDONIA [None]
  - GASTROOESOPHAGEAL REFLUX DISEASE [None]
  - ICHTHYOSIS [None]
  - ECZEMA [None]
  - ECZEMA ASTEATOTIC [None]
  - JAW FRACTURE [None]
  - PLASMACYTOSIS [None]
  - HALLUCINATION, AUDITORY [None]
  - MUCOSAL INFLAMMATION [None]
  - OSTEONECROSIS OF JAW [None]
  - LOOSE TOOTH [None]
  - PAIN [None]
  - HYPOPHAGIA [None]
  - UTERINE LEIOMYOMA [None]
  - PRURITUS [None]
  - VIITH NERVE PARALYSIS [None]
  - FLUID OVERLOAD [None]
  - HYPOVOLAEMIA [None]
  - INFLAMMATION [None]
  - ABDOMINAL PAIN [None]
  - DIARRHOEA [None]
  - OROPHARYNGEAL PAIN [None]
  - TONGUE COATED [None]
  - COUGH [None]
  - POLYURIA [None]
  - IMPAIRED HEALING [None]
  - COGNITIVE DISORDER [None]
  - TOOTH LOSS [None]
  - SWELLING [None]
  - TOOTH FRACTURE [None]
  - EMOTIONAL DISTRESS [None]
  - MULTIPLE MYELOMA [None]
  - HYPERTENSION [None]
  - MUSCULAR WEAKNESS [None]
  - SPINAL COLUMN STENOSIS [None]
